FAERS Safety Report 10210486 (Version 1)
Quarter: 2014Q2

REPORT INFORMATION
  Report Type: Spontaneous
  Country: US (occurrence: US)
  Receive Date: 20140602
  Receipt Date: 20140602
  Transmission Date: 20141212
  Serious: Yes (Other)
  Sender: FDA-Public Use
  Company Number: US-ACTAVIS-2014-11736

PATIENT
  Sex: 0

DRUGS (2)
  1. CLOPIDOGREL BISULFATE (ATLLC) [Suspect]
     Indication: PROPHYLAXIS
     Dosage: 300 MG, UNK; LOADING DOSE
     Route: 065
  2. CLOPIDOGREL BISULFATE (ATLLC) [Suspect]
     Dosage: 75 MG, DAILY
     Route: 065

REACTIONS (1)
  - Drug resistance [Not Recovered/Not Resolved]
